FAERS Safety Report 9419407 (Version 1)
Quarter: 2013Q3

REPORT INFORMATION
  Report Type: Spontaneous
  Country: GB (occurrence: GB)
  Receive Date: 20130723
  Receipt Date: 20130723
  Transmission Date: 20140515
  Serious: Yes (Other)
  Sender: FDA-Public Use
  Company Number: GER/UKI/13/0032038

PATIENT
  Age: 55 Year
  Sex: Female
  Weight: 60.32 kg

DRUGS (3)
  1. SERTRALINE (SERTRALINE HYDROCHLORIDE) [Suspect]
     Indication: ANXIETY
     Route: 048
  2. GRAPEFRUIT [Suspect]
     Indication: PRODUCT USED FOR UNKNOWN INDICATION
  3. SERTRALINE (SERTRALINE) [Concomitant]

REACTIONS (1)
  - Migraine with aura [None]
